FAERS Safety Report 19831314 (Version 2)
Quarter: 2021Q3

REPORT INFORMATION
  Report Type: Spontaneous
  Country: IE (occurrence: IE)
  Receive Date: 20210915
  Receipt Date: 20210928
  Transmission Date: 20211014
  Serious: Yes (Other)
  Sender: FDA-Public Use
  Company Number: IE-SUN PHARMACEUTICAL INDUSTRIES LTD-2021RR-310565

PATIENT
  Sex: Male

DRUGS (1)
  1. ATORVASTATIN [Suspect]
     Active Substance: ATORVASTATIN
     Indication: PRODUCT USED FOR UNKNOWN INDICATION
     Dosage: 1 TAB PER DAY
     Route: 065

REACTIONS (10)
  - Muscle fatigue [Not Recovered/Not Resolved]
  - Arthralgia [Not Recovered/Not Resolved]
  - Dizziness [Not Recovered/Not Resolved]
  - Blood triglycerides decreased [Unknown]
  - Blood cholesterol increased [Unknown]
  - Fatigue [Not Recovered/Not Resolved]
  - Liver injury [Unknown]
  - Yawning [Not Recovered/Not Resolved]
  - Asthenia [Not Recovered/Not Resolved]
  - Low density lipoprotein increased [Unknown]

NARRATIVE: CASE EVENT DATE: 2021
